FAERS Safety Report 8615315-0 (Version None)
Quarter: 2012Q3

REPORT INFORMATION
  Report Type: 
  Country: None (occurrence: None)
  Receive Date: 20120823
  Receipt Date: 20120814
  Transmission Date: 20120928
  Serious: Yes (Hospitalization, Other)
  Sender: FDA-Public Use
  Company Number: US-ELI_LILLY_AND_COMPANY-US201207001974

PATIENT
  Age: 85 Year
  Sex: Male
  Weight: 71.202 kg

DRUGS (6)
  1. GLUCOTROL [Concomitant]
  2. CYMBALTA [Suspect]
     Dosage: 30 MG, UNKNOWN
     Route: 048
     Dates: start: 20120501
  3. LASIX [Concomitant]
  4. ALTACE [Concomitant]
     Dosage: UNK UNK, UNKNOWN
  5. LIPITOR [Concomitant]
  6. ACTOS [Concomitant]
     Dosage: UNK

REACTIONS (7)
  - DRUG DISPENSING ERROR [None]
  - URINARY TRACT INFECTION [None]
  - WRONG DRUG ADMINISTERED [None]
  - MALAISE [None]
  - GASTROINTESTINAL HAEMORRHAGE [None]
  - LETHARGY [None]
  - RENAL FAILURE ACUTE [None]
